FAERS Safety Report 23383051 (Version 3)
Quarter: 2024Q2

REPORT INFORMATION
  Report Type: Spontaneous
  Country: US (occurrence: US)
  Receive Date: 20240109
  Receipt Date: 20240617
  Transmission Date: 20240715
  Serious: Yes (Other)
  Sender: FDA-Public Use
  Company Number: US-PFIZER INC-202300454241

PATIENT
  Age: 53 Year
  Sex: Female
  Weight: 58.96 kg

DRUGS (8)
  1. IBRANCE [Suspect]
     Active Substance: PALBOCICLIB
     Indication: Breast cancer metastatic
     Dosage: DAILY FOR 3 WEEKS- 1 WEEK OFF
     Dates: start: 201810
  2. IBRANCE [Suspect]
     Active Substance: PALBOCICLIB
     Dosage: 125 MG, CYCLIC (1 TABLET ONCE DAILY ON DAYS 1 THROUGH 21 OF A 28 DAY CYCLE)
     Dates: start: 2019
  3. IBRANCE [Suspect]
     Active Substance: PALBOCICLIB
     Dosage: 1 TABLET BY MOUTH ONCE DAILY ON DAYS 1 THROUGH 21 OF A 28 DAY CYCLE
     Route: 048
     Dates: start: 2019
  4. LETROZOLE [Concomitant]
     Active Substance: LETROZOLE
     Dosage: UNK
     Dates: start: 201904
  5. LUPRON [Concomitant]
     Active Substance: LEUPROLIDE ACETATE
     Dosage: UNK
     Dates: start: 201810
  6. XGEVA [Concomitant]
     Active Substance: DENOSUMAB
     Dosage: UNK
     Dates: start: 201810
  7. NALTREXONE [Concomitant]
     Active Substance: NALTREXONE
     Dosage: LOW DOSE
     Dates: start: 201810
  8. METFORMIN [Concomitant]
     Active Substance: METFORMIN HYDROCHLORIDE
     Dosage: 5 MG
     Dates: start: 2020

REACTIONS (7)
  - Cataract [Recovering/Resolving]
  - Gastrointestinal disorder [Not Recovered/Not Resolved]
  - Digestive enzyme decreased [Unknown]
  - Overgrowth fungal [Unknown]
  - Gastrointestinal bacterial overgrowth [Unknown]
  - Visual impairment [Recovering/Resolving]
  - Halo vision [Recovering/Resolving]

NARRATIVE: CASE EVENT DATE: 20220301
